FAERS Safety Report 25172367 (Version 1)
Quarter: 2025Q2

REPORT INFORMATION
  Report Type: Spontaneous
  Country: US (occurrence: US)
  Receive Date: 20250408
  Receipt Date: 20250408
  Transmission Date: 20250717
  Serious: Yes (Hospitalization, Other)
  Sender: MYLAN
  Company Number: US-MYLANLABS-2025M1029585

PATIENT
  Age: 87 Year
  Sex: Female

DRUGS (16)
  1. VORICONAZOLE [Suspect]
     Active Substance: VORICONAZOLE
     Indication: Keratitis fungal
  2. VORICONAZOLE [Suspect]
     Active Substance: VORICONAZOLE
     Route: 061
  3. VORICONAZOLE [Suspect]
     Active Substance: VORICONAZOLE
     Route: 061
  4. VORICONAZOLE [Suspect]
     Active Substance: VORICONAZOLE
  5. POSACONAZOLE [Suspect]
     Active Substance: POSACONAZOLE
     Indication: Keratitis fungal
  6. POSACONAZOLE [Suspect]
     Active Substance: POSACONAZOLE
     Route: 065
  7. POSACONAZOLE [Suspect]
     Active Substance: POSACONAZOLE
     Route: 065
  8. POSACONAZOLE [Suspect]
     Active Substance: POSACONAZOLE
  9. NATAMYCIN [Suspect]
     Active Substance: NATAMYCIN
     Indication: Keratitis fungal
  10. NATAMYCIN [Suspect]
     Active Substance: NATAMYCIN
     Route: 065
  11. NATAMYCIN [Suspect]
     Active Substance: NATAMYCIN
     Route: 065
  12. NATAMYCIN [Suspect]
     Active Substance: NATAMYCIN
  13. AMPHOTERICIN B [Suspect]
     Active Substance: AMPHOTERICIN B
     Indication: Keratitis fungal
  14. AMPHOTERICIN B [Suspect]
     Active Substance: AMPHOTERICIN B
     Route: 065
  15. AMPHOTERICIN B [Suspect]
     Active Substance: AMPHOTERICIN B
     Route: 065
  16. AMPHOTERICIN B [Suspect]
     Active Substance: AMPHOTERICIN B

REACTIONS (2)
  - Hypertension [Unknown]
  - Drug ineffective [Unknown]
